FAERS Safety Report 8711477 (Version 2)
Quarter: 2012Q4

REPORT INFORMATION
  Report Type: 
  Country: US (occurrence: US)
  Receive Date: 20120829
  Receipt Date: 20121001
  Transmission Date: 20130627
  Serious: Yes (Other)
  Sender: FDA-Public Use
  Company Number: US-ROCHE-1098273

PATIENT
  Sex: Female

DRUGS (11)
  1. XOLAIR [Suspect]
     Indication: ASTHMA
     Route: 065
     Dates: start: 200804, end: 201006
  2. XOLAIR [Suspect]
     Indication: RHINITIS ALLERGIC
  3. ALBUTEROL [Concomitant]
  4. SINGULAIR [Concomitant]
  5. ADVAIR [Concomitant]
     Dosage: 500/50
     Route: 065
  6. PRILOSEC [Concomitant]
  7. TESSALON [Concomitant]
  8. FEXOFENADINE [Concomitant]
  9. NASONEX [Concomitant]
  10. VERAMYST [Concomitant]
  11. ASTELIN [Concomitant]

REACTIONS (6)
  - Upper respiratory tract infection [Recovered/Resolved]
  - Asthma [Unknown]
  - Wheezing [Unknown]
  - Dyspnoea [Unknown]
  - Cough [Unknown]
  - No therapeutic response [Unknown]
